FAERS Safety Report 7026455-4 (Version None)
Quarter: 2010Q4

REPORT INFORMATION
  Report Type: 
  Country: None (occurrence: None)
  Receive Date: 20101004
  Receipt Date: 20100921
  Transmission Date: 20110411
  Serious: Yes (Other)
  Sender: FDA-Public Use
  Company Number: US-ELI_LILLY_AND_COMPANY-US201009006494

PATIENT
  Sex: Female

DRUGS (5)
  1. PROZAC [Suspect]
     Indication: DEPRESSION
  2. CYMBALTA [Suspect]
     Indication: DEPRESSION
     Dosage: 60 MG, 2/D
  3. FLUOXETINE HYDROCHLORIDE [Concomitant]
  4. XANAX [Concomitant]
  5. TYLENOL                                 /SCH/ [Concomitant]

REACTIONS (8)
  - ANXIETY [None]
  - CHOROIDITIS [None]
  - CRYING [None]
  - DRUG WITHDRAWAL SYNDROME [None]
  - HEADACHE [None]
  - NAUSEA [None]
  - SKIN DISCOLOURATION [None]
  - TREMOR [None]
